FAERS Safety Report 8277361-9 (Version None)
Quarter: 2012Q2

REPORT INFORMATION
  Report Type: 
  Country: None (occurrence: None)
  Receive Date: 20120412
  Receipt Date: 20120403
  Transmission Date: 20120825
  Serious: Yes (Hospitalization)
  Sender: FDA-Public Use
  Company Number: US-ASTRAZENECA-2012SE22252

PATIENT
  Age: 66 Year
  Sex: Female

DRUGS (2)
  1. XANAX [Concomitant]
     Indication: STRESS
  2. CRESTOR [Suspect]
     Route: 048

REACTIONS (3)
  - STAPHYLOCOCCAL INFECTION [None]
  - ARTHROPATHY [None]
  - ABASIA [None]
